FAERS Safety Report 5301267-8 (Version None)
Quarter: 2007Q2

REPORT INFORMATION
  Report Type: 
  Country: None (occurrence: None)
  Receive Date: 20070418
  Receipt Date: 20070410
  Transmission Date: 20071010
  Serious: Yes (Other)
  Sender: FDA-Public Use
  Company Number: KR-PFIZER INC-2007029304

PATIENT
  Sex: Male

DRUGS (1)
  1. TERRAMYCIN ONT [Suspect]
     Indication: INJURY
     Route: 061

REACTIONS (2)
  - INTENTIONAL DRUG MISUSE [None]
  - SYNCOPE [None]
